FAERS Safety Report 17047010 (Version 1)
Quarter: 2019Q4

REPORT INFORMATION
  Report Type: Spontaneous
  Country: US (occurrence: US)
  Receive Date: 20191119
  Receipt Date: 20191119
  Transmission Date: 20200122
  Serious: No
  Sender: FDA-Public Use
  Company Number: US-ACCORD-128458

PATIENT
  Age: 75 Year
  Sex: Male
  Weight: 94.35 kg

DRUGS (1)
  1. HYDROCHLOROTHIAZIDE ACCORD [Suspect]
     Active Substance: HYDROCHLOROTHIAZIDE
     Indication: BLOOD PRESSURE MEASUREMENT
     Dosage: STRENGTH: 12.5 MG?12.5 MG DAILY, INCREASED TO TWO TABLETS DAILY

REACTIONS (1)
  - Drug ineffective [Unknown]
